FAERS Safety Report 12502182 (Version 3)
Quarter: 2016Q3

REPORT INFORMATION
  Report Type: Spontaneous
  Country: SI (occurrence: SI)
  Receive Date: 20160627
  Receipt Date: 20160923
  Transmission Date: 20161109
  Serious: Yes (Hospitalization)
  Sender: FDA-Public Use
  Company Number: PHHY2016SI083520

PATIENT
  Age: 19 Year
  Sex: Female

DRUGS (3)
  1. BROMAZEPAM [Suspect]
     Active Substance: BROMAZEPAM
     Indication: PRODUCT USED FOR UNKNOWN INDICATION
     Dosage: 45 MG, UNK
     Route: 065
  2. KVELUX [Suspect]
     Active Substance: QUETIAPINE FUMARATE
     Indication: SUICIDE ATTEMPT
     Dosage: 6000 MG, UNK
     Route: 065
  3. CITALOPRAM [Suspect]
     Active Substance: CITALOPRAM HYDROBROMIDE
     Indication: SUICIDE ATTEMPT
     Dosage: 400 MG, UNK
     Route: 065

REACTIONS (10)
  - Bundle branch block right [None]
  - Pupil fixed [None]
  - Poisoning [Unknown]
  - Ventricular tachycardia [None]
  - Suicide attempt [Unknown]
  - Blood potassium decreased [None]
  - Ventricular extrasystoles [Unknown]
  - Epilepsy [Recovered/Resolved]
  - Electrocardiogram QT prolonged [Unknown]
  - Tachycardia [Recovered/Resolved]
